APPROVED DRUG PRODUCT: GUAIFENESIN
Active Ingredient: GUAIFENESIN
Strength: 600MG
Dosage Form/Route: TABLET, EXTENDED RELEASE;ORAL
Application: A210453 | Product #001
Applicant: AUROBINDO PHARMA LTD
Approved: Oct 21, 2019 | RLD: No | RS: No | Type: OTC